FAERS Safety Report 10220042 (Version 1)
Quarter: 2014Q1

REPORT INFORMATION
  Report Type: Spontaneous
  Country: US (occurrence: None)
  Receive Date: 20140306
  Receipt Date: 20140306
  Transmission Date: 20141002
  Serious: Yes (Other)
  Sender: FDA-Public Use
  Company Number: 163-21880-13031265

PATIENT
  Age: 77 Year
  Sex: Female
  Weight: 56.7 kg

DRUGS (6)
  1. REVLIMID (LENALIDOMIDE) (10 MILLIGRAM, CAPSULES) [Suspect]
     Indication: PLASMA CELL MYELOMA
     Dosage: 10 MG, 21 IN 28 D, PO
     Route: 048
     Dates: start: 20100921
  2. VITAMIN D3 (COLECALCIFEROL) (UNKNOWN) [Concomitant]
  3. ZOLOFT (SERTRALINE HYDROCHLORIDE) (TABLETS) [Concomitant]
  4. ZANTAC (RANITIDINE HYDROCHLORIDE) (TABLETS) [Concomitant]
  5. CALCIUM PLUS VITAMIN D (CALCIUM D3 ^STADA^) (TABLETS) [Concomitant]
  6. ASPIRIN (ACETYLSALICYLIC ACID) (CHEWABLE TABLET) [Concomitant]

REACTIONS (7)
  - Pyrexia [None]
  - Bronchitis [None]
  - Amnesia [None]
  - Cognitive disorder [None]
  - Weight increased [None]
  - Diarrhoea [None]
  - Abdominal pain upper [None]
